FAERS Safety Report 7300735-7 (Version None)
Quarter: 2011Q1

REPORT INFORMATION
  Report Type: 
  Country: None (occurrence: None)
  Receive Date: 20110207
  Receipt Date: 20110120
  Transmission Date: 20110831
  Serious: Yes (Other)
  Sender: FDA-Public Use
  Company Number: 2011SP002890

PATIENT
  Age: 27 Year
  Sex: Female

DRUGS (3)
  1. REBOXETIN [Concomitant]
  2. NUVARING [Suspect]
     Indication: PRODUCT USED FOR UNKNOWN INDICATION
     Dates: start: 20100101
  3. MODASOMIL [Concomitant]

REACTIONS (2)
  - MENSTRUAL DISORDER [None]
  - CATAPLEXY [None]
